FAERS Safety Report 5247888-2 (Version None)
Quarter: 2007Q1

REPORT INFORMATION
  Report Type: 
  Country: None (occurrence: None)
  Receive Date: 20070223
  Receipt Date: 20070207
  Transmission Date: 20070707
  Serious: Yes (Hospitalization, Other)
  Sender: FDA-Public Use
  Company Number: PHEH2006US08504

PATIENT
  Sex: Male

DRUGS (11)
  1. CLOZARIL [Suspect]
     Dosage: UNK, UNK
     Dates: start: 19950101
  2. SERENTIL [Suspect]
     Dosage: UNK, UNK
  3. LITHIUM CARBONATE [Concomitant]
     Dosage: 600 MG, BID
  4. HYDROXYZINE [Concomitant]
     Dosage: 25 MG, BID
  5. PLENDIL [Concomitant]
     Dosage: 5 MG, QD
  6. CLARITIN [Concomitant]
     Dosage: ONE TAB PO DAILY
  7. VITAMIN CAP [Concomitant]
  8. PREVACID [Concomitant]
     Dosage: 30 MG, UNK
  9. LOTRISONE [Concomitant]
  10. DRAMAMINE [Concomitant]
  11. CLOZAPINE [Suspect]
     Dosage: 500 MG, QD
     Dates: start: 20050913

REACTIONS (12)
  - ANTIPSYCHOTIC DRUG LEVEL INCREASED [None]
  - BLOOD CREATININE INCREASED [None]
  - BLOOD POTASSIUM INCREASED [None]
  - CHEST X-RAY ABNORMAL [None]
  - ELECTROCARDIOGRAM ABNORMAL [None]
  - ELECTROCARDIOGRAM T WAVE ABNORMAL [None]
  - HOSPITALISATION [None]
  - HYPOKALAEMIA [None]
  - MASS [None]
  - PARKINSON'S DISEASE [None]
  - SKIN ULCER [None]
  - TARDIVE DYSKINESIA [None]
